FAERS Safety Report 5810132-9 (Version None)
Quarter: 2008Q3

REPORT INFORMATION
  Report Type: 
  Country: None (occurrence: None)
  Receive Date: 20080715
  Receipt Date: 20070712
  Transmission Date: 20090109
  Serious: No
  Sender: FDA-Public Use
  Company Number: A0663706A

PATIENT
  Sex: Male

DRUGS (7)
  1. IMITREX [Suspect]
     Indication: MIGRAINE
     Route: 048
  2. PETADOLEX [Concomitant]
  3. THIAMINE [Concomitant]
  4. MAGNESIUM [Concomitant]
  5. UNKNOWN MEDICATION [Concomitant]
  6. OMEGA 3 FATTY ACID [Concomitant]
  7. ZOCOR [Concomitant]

REACTIONS (7)
  - AGITATION [None]
  - ANXIETY [None]
  - DRUG INEFFECTIVE [None]
  - INSOMNIA [None]
  - IRRITABILITY [None]
  - NAUSEA [None]
  - PHARMACEUTICAL PRODUCT COMPLAINT [None]
